FAERS Safety Report 5762208-2 (Version None)
Quarter: 2008Q2

REPORT INFORMATION
  Report Type: 
  Country: None (occurrence: None)
  Receive Date: 20080609
  Receipt Date: 20080602
  Transmission Date: 20081010
  Serious: Yes (Hospitalization, Other)
  Sender: FDA-Public Use
  Company Number: US-BAYER-200824641NA

PATIENT
  Age: 30 Year
  Sex: Female
  Weight: 95 kg

DRUGS (1)
  1. YAZ [Suspect]
     Indication: CONTRACEPTION
     Route: 048
     Dates: start: 20071201, end: 20080503

REACTIONS (4)
  - CHEST PAIN [None]
  - DYSPNOEA [None]
  - PULMONARY EMBOLISM [None]
  - THROMBOSIS [None]
